FAERS Safety Report 15685636 (Version 2)
Quarter: 2018Q4

REPORT INFORMATION
  Report Type: Spontaneous
  Country: IL (occurrence: IL)
  Receive Date: 20181204
  Receipt Date: 20181204
  Transmission Date: 20190205
  Serious: Yes (Disabling)
  Sender: FDA-Public Use
  Company Number: IL-BAYER-2018-217999

PATIENT
  Age: 67 Year
  Sex: Male

DRUGS (4)
  1. BONDORMIN [Concomitant]
     Active Substance: BROTIZOLAM
  2. EXFORGE [Suspect]
     Active Substance: AMLODIPINE BESYLATE\VALSARTAN
     Indication: HYPERTENSION
     Dosage: UNK
     Dates: start: 20180101
  3. ASPIRIN. [Suspect]
     Active Substance: ASPIRIN
  4. CRESTOR [Concomitant]
     Active Substance: ROSUVASTATIN CALCIUM

REACTIONS (2)
  - Balance disorder [None]
  - Dizziness [None]
